FAERS Safety Report 14204539 (Version 1)
Quarter: 2017Q4

REPORT INFORMATION
  Report Type: Spontaneous
  Country: US (occurrence: US)
  Receive Date: 20171120
  Receipt Date: 20171120
  Transmission Date: 20180321
  Serious: Yes (Hospitalization)
  Sender: FDA-Public Use
  Company Number: US-ROCHE-2021443

PATIENT

DRUGS (5)
  1. XELJANZ [Suspect]
     Active Substance: TOFACITINIB CITRATE
     Indication: RHEUMATOID ARTHRITIS
     Dosage: ONGOING:NO
     Route: 048
     Dates: start: 20150715, end: 20170706
  2. ACTEMRA [Suspect]
     Active Substance: TOCILIZUMAB
     Indication: PRODUCT USED FOR UNKNOWN INDICATION
     Route: 065
  3. FOLIC ACID. [Concomitant]
     Active Substance: FOLIC ACID
     Dosage: }8YEARS
     Route: 065
  4. ALEVE [Concomitant]
     Active Substance: NAPROXEN SODIUM
  5. ARAVA [Concomitant]
     Active Substance: LEFLUNOMIDE
     Indication: RHEUMATOID ARTHRITIS
     Route: 065
     Dates: start: 20130822, end: 201708

REACTIONS (4)
  - Acute respiratory distress syndrome [Recovering/Resolving]
  - Lip swelling [Unknown]
  - Muscular weakness [Unknown]
  - Thrombosis [Unknown]

NARRATIVE: CASE EVENT DATE: 20170706
